FAERS Safety Report 20427711 (Version 1)
Quarter: 2022Q1

REPORT INFORMATION
  Report Type: Spontaneous
  Country: IT (occurrence: IT)
  Receive Date: 20220204
  Receipt Date: 20220204
  Transmission Date: 20220423
  Serious: No
  Sender: FDA-Public Use
  Company Number: IT-LUPIN PHARMACEUTICALS INC.-2022-01312

PATIENT
  Age: 59 Year
  Sex: Female

DRUGS (3)
  1. AZITHROMYCIN [Suspect]
     Active Substance: AZITHROMYCIN
     Indication: COVID-19 pneumonia
     Dosage: 500 MG, QD (FOLLOWING 3 ADMINISTRATIONS OF AZITHROMYCIN IT WAS STOPPED)
     Route: 065
     Dates: start: 20200425, end: 20200427
  2. HYDROXYCHLOROQUINE [Suspect]
     Active Substance: HYDROXYCHLOROQUINE
     Indication: COVID-19 pneumonia
     Dosage: 200 MG, FOLLOWING 3 ADMINISTRATIONS OF HYDROXYCHLOROQUINE IT WAS STOPPED
     Route: 065
     Dates: start: 20200425, end: 20200427
  3. ENOXAPARIN [Suspect]
     Active Substance: ENOXAPARIN
     Indication: COVID-19 pneumonia
     Dosage: 6000 INTERNATIONAL UNIT
     Route: 065
     Dates: start: 20200425

REACTIONS (1)
  - Off label use [Unknown]

NARRATIVE: CASE EVENT DATE: 20200425
